FAERS Safety Report 13301140 (Version 1)
Quarter: 2017Q1

REPORT INFORMATION
  Report Type: Spontaneous
  Country: US (occurrence: US)
  Receive Date: 20170306
  Receipt Date: 20170306
  Transmission Date: 20170428
  Serious: No
  Sender: FDA-Public Use
  Company Number: None

PATIENT
  Age: 34 Year
  Sex: Female
  Weight: 71.55 kg

DRUGS (12)
  1. PROBIOTIC [Concomitant]
     Active Substance: PROBIOTICS NOS
  2. PREDNISONE. [Suspect]
     Active Substance: PREDNISONE
     Indication: CROHN^S DISEASE
     Dates: start: 20170203
  3. FISH OIL [Concomitant]
     Active Substance: FISH OIL
  4. LIALDA (MESALAMINE / 5-ASA) [Concomitant]
  5. HUMIRA [Concomitant]
     Active Substance: ADALIMUMAB
  6. CALCIUM CITRATE [Concomitant]
     Active Substance: CALCIUM CITRATE
  7. ROGAINE (MINOXIDIL) FOAM [Concomitant]
  8. HUMIRA [Suspect]
     Active Substance: ADALIMUMAB
     Indication: CROHN^S DISEASE
     Dates: start: 20161219
  9. PREDNISONE. [Concomitant]
     Active Substance: PREDNISONE
  10. IRON SUPPLEMENT [Concomitant]
     Active Substance: IRON
  11. VITAMIN D3 [Concomitant]
     Active Substance: CHOLECALCIFEROL
  12. MULTIVITAMIN [Concomitant]
     Active Substance: VITAMINS

REACTIONS (6)
  - Cushingoid [None]
  - Arthralgia [None]
  - Muscle spasms [None]
  - Night sweats [None]
  - Migraine [None]
  - Increased appetite [None]

NARRATIVE: CASE EVENT DATE: 20170304
